FAERS Safety Report 6192435-4 (Version None)
Quarter: 2009Q2

REPORT INFORMATION
  Report Type: 
  Country: None (occurrence: None)
  Receive Date: 20090518
  Receipt Date: 20090511
  Transmission Date: 20091009
  Serious: No
  Sender: FDA-Public Use
  Company Number: US-BAYER-200920428NA

PATIENT
  Sex: Female

DRUGS (2)
  1. CIPRO [Suspect]
     Indication: DRUG USE FOR UNKNOWN INDICATION
  2. CIPRO [Suspect]

REACTIONS (5)
  - DIARRHOEA [None]
  - HEARING IMPAIRED [None]
  - PAIN [None]
  - VISION BLURRED [None]
  - VOMITING [None]
